FAERS Safety Report 15307917 (Version 1)
Quarter: 2018Q3

REPORT INFORMATION
  Report Type: Spontaneous
  Country: US (occurrence: US)
  Receive Date: 20180822
  Receipt Date: 20180822
  Transmission Date: 20181010
  Serious: No
  Sender: FDA-Public Use
  Company Number: US-BECTON DICKINSON-2017BDN00242

PATIENT
  Sex: Female
  Weight: 70.3 kg

DRUGS (3)
  1. CHLORAPREP [Suspect]
     Active Substance: CHLORHEXIDINE GLUCONATE\ISOPROPYL ALCOHOL
     Indication: INFECTION PROPHYLAXIS
     Dosage: UNK, ONCE TO BOTH SIDES ON THE FRONT OF LEGS FROM GOING TO KNEE CAPS AND PROBABLY A LITTLE HIGHER
     Route: 061
     Dates: start: 20160921, end: 20160921
  2. OXYCODONE [Concomitant]
     Active Substance: OXYCODONE
     Dosage: UNK, AS NEEDED (MAYBE TWICE A MONTH)
  3. VALIUM [Concomitant]
     Active Substance: DIAZEPAM
     Dosage: UNK, AS NEEDED (MAYBE TWICE A MONTH)

REACTIONS (7)
  - Blister [Recovered/Resolved]
  - Crying [Unknown]
  - Erythema [Recovering/Resolving]
  - Phantom pain [Not Recovered/Not Resolved]
  - Drug hypersensitivity [Recovering/Resolving]
  - Hypoaesthesia [Not Recovered/Not Resolved]
  - Burning sensation [Recovering/Resolving]
